FAERS Safety Report 16821696 (Version 1)
Quarter: 2019Q3

REPORT INFORMATION
  Report Type: Spontaneous
  Country: US (occurrence: US)
  Receive Date: 20190918
  Receipt Date: 20190918
  Transmission Date: 20191005
  Serious: Yes (Other)
  Sender: FDA-Public Use
  Company Number: US-ALVOGEN-2019-ALVOGEN-101337

PATIENT
  Age: 63 Year

DRUGS (2)
  1. CLINDAMYCIN. [Suspect]
     Active Substance: CLINDAMYCIN
     Indication: RASH
     Route: 061
  2. CLEOCIN PHOSPHATE [Suspect]
     Active Substance: CLINDAMYCIN PHOSPHATE
     Indication: RASH
     Route: 061

REACTIONS (3)
  - Suicidal ideation [Unknown]
  - Neoplasm malignant [Unknown]
  - Cerebrovascular accident [Unknown]
